FAERS Safety Report 8294841-0 (Version None)
Quarter: 2012Q2

REPORT INFORMATION
  Report Type: 
  Country: None (occurrence: None)
  Receive Date: 20120418
  Receipt Date: 20120410
  Transmission Date: 20120825
  Serious: Yes (Hospitalization)
  Sender: FDA-Public Use
  Company Number: JP-AMGEN-QUU406373

PATIENT
  Age: 56 Year
  Sex: Male

DRUGS (6)
  1. CALCIUM CARBONATE [Concomitant]
     Dosage: 1.5 G, TID
     Route: 048
     Dates: start: 20060501
  2. RENAGEL [Concomitant]
     Dosage: 1 G, TID
     Route: 048
     Dates: start: 20070301
  3. ADALAT CC [Concomitant]
     Dosage: 20 MG, BID
     Route: 048
     Dates: start: 20060801
  4. SENSIPAR [Suspect]
     Indication: HYPERPARATHYROIDISM SECONDARY
     Dosage: 25 MG, QD
     Route: 048
     Dates: start: 20100304, end: 20100330
  5. HEPARIN [Concomitant]
  6. DARBEPOTIN ALFA [Concomitant]
     Dosage: 15 MUG, QWK
     Route: 042
     Dates: start: 20080701

REACTIONS (4)
  - RENAL HAEMORRHAGE [None]
  - EOSINOPHIL COUNT INCREASED [None]
  - ABDOMINAL PAIN LOWER [None]
  - ANAEMIA [None]
